FAERS Safety Report 18524791 (Version 1)
Quarter: 2020Q4

REPORT INFORMATION
  Report Type: Spontaneous
  Country: US (occurrence: US)
  Receive Date: 20201120
  Receipt Date: 20201120
  Transmission Date: 20210114
  Serious: Yes (Hospitalization)
  Sender: FDA-Public Use
  Company Number: US-009507513-2011USA010543

PATIENT
  Sex: Male

DRUGS (3)
  1. SIMPONI [Suspect]
     Active Substance: GOLIMUMAB
     Dosage: UNK
     Route: 058
     Dates: start: 201510
  2. PRINIVIL [Suspect]
     Active Substance: LISINOPRIL
     Indication: PRODUCT USED FOR UNKNOWN INDICATION
     Dosage: DOSAGE FORM: UNSPECIFIED
     Route: 065
  3. SIMPONI [Suspect]
     Active Substance: GOLIMUMAB
     Indication: COLITIS ULCERATIVE
     Dosage: UNK
     Route: 058
     Dates: start: 20151105

REACTIONS (6)
  - Dysphagia [Unknown]
  - Dyspepsia [Unknown]
  - Lip blister [Unknown]
  - Fungal infection [Recovered/Resolved]
  - Sepsis [Unknown]
  - Lip swelling [Unknown]

NARRATIVE: CASE EVENT DATE: 201511
